FAERS Safety Report 6417656-4 (Version None)
Quarter: 2009Q4

REPORT INFORMATION
  Report Type: 
  Country: None (occurrence: None)
  Receive Date: 20091028
  Receipt Date: 20091015
  Transmission Date: 20100525
  Serious: Yes (Hospitalization)
  Sender: FDA-Public Use
  Company Number: PHEH2009US13742

PATIENT
  Sex: Female

DRUGS (1)
  1. EXJADE [Suspect]
     Indication: MULTIPLE MYELOMA
     Dosage: 1500 MG DAILY
     Route: 048
     Dates: start: 20090915

REACTIONS (1)
  - STEM CELL TRANSPLANT [None]
